FAERS Safety Report 14361428 (Version 1)
Quarter: 2018Q1

REPORT INFORMATION
  Report Type: Spontaneous
  Country: GB (occurrence: GB)
  Receive Date: 20180108
  Receipt Date: 20180108
  Transmission Date: 20180509
  Serious: Yes (Disabling)
  Sender: FDA-Public Use
  Company Number: GB-AXELLIA-001254

PATIENT
  Age: 63 Year
  Sex: Male
  Weight: 128 kg

DRUGS (36)
  1. FORTISIP [Concomitant]
     Active Substance: CARBOHYDRATES\FATTY ACIDS\MINERALS\PROTEIN\VITAMINS
  2. ZOPICLONE [Concomitant]
     Active Substance: ZOPICLONE
  3. GLYCEROL [Concomitant]
     Active Substance: GLYCERIN
  4. POTASSIUM CHLORIDE. [Concomitant]
     Active Substance: POTASSIUM CHLORIDE
  5. MAGNESIUM ACETATE [Concomitant]
     Active Substance: MAGNESIUM ACETATE
  6. FUROSEMIDE. [Concomitant]
     Active Substance: FUROSEMIDE
  7. GENTAMICIN. [Concomitant]
     Active Substance: GENTAMICIN
  8. RANITIDINE. [Concomitant]
     Active Substance: RANITIDINE
  9. LANSOPRAZOLE. [Concomitant]
     Active Substance: LANSOPRAZOLE
  10. PHOSPHORIC ACID [Concomitant]
     Active Substance: PHOSPHORIC ACID
  11. VORICONAZOLE. [Suspect]
     Active Substance: VORICONAZOLE
     Indication: ENDOCARDITIS CANDIDA
     Route: 042
     Dates: start: 20171031, end: 20171106
  12. SENNA ALEXANDRINA [Concomitant]
     Active Substance: SENNA LEAF
  13. GLYCERYL TRINITRATE [Concomitant]
     Active Substance: NITROGLYCERIN
  14. ALFACALCIDOL [Concomitant]
     Active Substance: ALFACALCIDOL
  15. CORSODYL [Concomitant]
     Active Substance: CHLORHEXIDINE GLUCONATE
  16. AMOXICILLIN. [Concomitant]
     Active Substance: AMOXICILLIN
     Indication: ENDOCARDITIS CANDIDA
  17. DIAZEPAM. [Concomitant]
     Active Substance: DIAZEPAM
  18. DOCUSATE/DOCUSATE CALCIUM/DOCUSATE POTASSIUM/DOCUSATE SODIUM [Concomitant]
  19. CASPOFUNGIN [Suspect]
     Active Substance: CASPOFUNGIN
     Indication: ENDOCARDITIS CANDIDA
     Dosage: IMMEDIATE (STAT)?ALSO RECEIVED ON JAN-2017 TO MAR-2017 FOR 6 WEEKS.
     Route: 042
     Dates: start: 20171113, end: 20171113
  20. GAVISCON ADVANCE [Concomitant]
     Active Substance: POTASSIUM BICARBONATE\SODIUM ALGINATE
  21. PARACETAMOL [Concomitant]
     Active Substance: ACETAMINOPHEN
  22. CANDESARTAN. [Concomitant]
     Active Substance: CANDESARTAN
  23. DIHYDROCODEINE [Concomitant]
     Active Substance: DIHYDROCODEINE
  24. EPLERENONE. [Concomitant]
     Active Substance: EPLERENONE
  25. ACETYLSALICYLIC ACID [Concomitant]
     Active Substance: ASPIRIN
  26. SANDO-K [Concomitant]
     Active Substance: POTASSIUM BICARBONATE\POTASSIUM CHLORIDE
  27. INSULIN GLULISINE [Concomitant]
     Active Substance: INSULIN GLULISINE
  28. LACTULOSE. [Concomitant]
     Active Substance: LACTULOSE
  29. TAZOCIN [Concomitant]
     Active Substance: PIPERACILLIN SODIUM\TAZOBACTAM SODIUM
  30. CEFUROXIME. [Concomitant]
     Active Substance: CEFUROXIME
  31. OXYCODONE [Concomitant]
     Active Substance: OXYCODONE
  32. ONDANSETRON [Concomitant]
     Active Substance: ONDANSETRON
  33. GELOPLASMA [Concomitant]
  34. SALBUTAMOL [Concomitant]
     Active Substance: ALBUTEROL
  35. ALLOPURINOL. [Concomitant]
     Active Substance: ALLOPURINOL
  36. ENOXAPARIN [Concomitant]
     Active Substance: ENOXAPARIN

REACTIONS (2)
  - Hypoacusis [Unknown]
  - Blindness [Unknown]
